FAERS Safety Report 18249794 (Version 2)
Quarter: 2022Q1

REPORT INFORMATION
  Report Type: Report from Study
  Country: CA (occurrence: None)
  Receive Date: 20200909
  Receipt Date: 20220119
  Transmission Date: 20220423
  Serious: Yes (Other)
  Sender: FDA-Public Use
  Company Number: 2020SF11549

PATIENT
  Age: 44 Year
  Sex: Female
  Weight: 117 kg

DRUGS (11)
  1. ROSUVASTATIN CALCIUM [Suspect]
     Active Substance: ROSUVASTATIN CALCIUM
     Indication: Product used for unknown indication
     Route: 065
  2. ACTEMRA [Suspect]
     Active Substance: TOCILIZUMAB
     Indication: Rheumatoid arthritis
     Route: 042
     Dates: start: 20150422
  3. ACTEMRA [Suspect]
     Active Substance: TOCILIZUMAB
     Indication: Rheumatoid arthritis
     Route: 042
  4. CIMZIA [Suspect]
     Active Substance: CERTOLIZUMAB PEGOL
     Indication: Product used for unknown indication
     Route: 058
     Dates: start: 20110411, end: 20120420
  5. HYDROXYCHLOROQUINE SULFATE [Suspect]
     Active Substance: HYDROXYCHLOROQUINE SULFATE
     Indication: Product used for unknown indication
     Route: 065
     Dates: start: 20171114, end: 20180306
  6. METHOTREXATE [Suspect]
     Active Substance: METHOTREXATE
     Indication: Product used for unknown indication
     Route: 065
     Dates: start: 20171114, end: 20180306
  7. SULFASALAZINE [Suspect]
     Active Substance: SULFASALAZINE
     Indication: Product used for unknown indication
     Route: 065
     Dates: start: 20171114, end: 20180306
  8. FOLIC ACID [Concomitant]
     Active Substance: FOLIC ACID
     Route: 065
  9. HUMALOG [Concomitant]
     Active Substance: INSULIN LISPRO
     Route: 065
  10. SERTRALINE HYDROCHLORIDE [Concomitant]
     Active Substance: SERTRALINE HYDROCHLORIDE
     Route: 065
  11. SYNTHROID [Concomitant]
     Active Substance: LEVOTHYROXINE SODIUM
     Route: 065

REACTIONS (34)
  - Arthralgia [Unknown]
  - Blood glucose increased [Recovering/Resolving]
  - Headache [Not Recovered/Not Resolved]
  - Anxiety [Unknown]
  - Blood pressure diastolic abnormal [Unknown]
  - Blood pressure diastolic decreased [Unknown]
  - Blood pressure diastolic increased [Unknown]
  - Blood pressure fluctuation [Unknown]
  - Blood pressure increased [Unknown]
  - Blood pressure systolic increased [Unknown]
  - Bronchitis [Not Recovered/Not Resolved]
  - Cardiac disorder [Unknown]
  - Contusion [Unknown]
  - Croup infectious [Recovering/Resolving]
  - Fibromyalgia [Unknown]
  - Foot deformity [Unknown]
  - Gastroenteritis viral [Recovering/Resolving]
  - Heart rate increased [Unknown]
  - Hypertension [Unknown]
  - Hypotension [Unknown]
  - Immunosuppression [Unknown]
  - Influenza [Unknown]
  - Infusion related reaction [Unknown]
  - Musculoskeletal stiffness [Unknown]
  - Nasopharyngitis [Not Recovered/Not Resolved]
  - Oropharyngeal pain [Unknown]
  - Pain [Unknown]
  - Pertussis [Recovering/Resolving]
  - Productive cough [Not Recovered/Not Resolved]
  - Stress [Unknown]
  - Weight decreased [Unknown]
  - Weight increased [Not Recovered/Not Resolved]
  - Drug ineffective [Unknown]
  - Unevaluable event [Unknown]

NARRATIVE: CASE EVENT DATE: 20120801
